FAERS Safety Report 24849882 (Version 1)
Quarter: 2025Q1

REPORT INFORMATION
  Report Type: Other
  Country: US (occurrence: US)
  Receive Date: 20250116
  Receipt Date: 20250116
  Transmission Date: 20250409
  Serious: Yes (Life-Threatening, Hospitalization, Other)
  Sender: CREEKWOOD PHARMACEUTICALS LLC
  Company Number: US-Creekwood Pharmaceuticals LLC-2169171

PATIENT
  Age: 47 Year
  Sex: Female

DRUGS (5)
  1. HYDROXYCHLOROQUINE SULFATE [Suspect]
     Active Substance: HYDROXYCHLOROQUINE SULFATE
     Indication: Product used for unknown indication
  2. METHYLPREDNISOLONE [Suspect]
     Active Substance: METHYLPREDNISOLONE
  3. HYDROCORTISONE ACETATE [Suspect]
     Active Substance: HYDROCORTISONE ACETATE
  4. COLCHICINE [Suspect]
     Active Substance: COLCHICINE
  5. AZATHIOPRINE [Suspect]
     Active Substance: AZATHIOPRINE

REACTIONS (17)
  - Respiratory failure [Recovering/Resolving]
  - Toxicity to various agents [Unknown]
  - Aspartate aminotransferase increased [Not Recovered/Not Resolved]
  - Generalised oedema [Unknown]
  - Hypotension [Unknown]
  - Blood bilirubin increased [Unknown]
  - Hypertransaminasaemia [Unknown]
  - Tachycardia [Unknown]
  - Tachypnoea [Unknown]
  - Asthenia [Unknown]
  - Blood lactic acid increased [Unknown]
  - Pancytopenia [Unknown]
  - Myopathy [Unknown]
  - Respiratory acidosis [Recovering/Resolving]
  - Proteus infection [Unknown]
  - Acute kidney injury [Unknown]
  - Enterococcal infection [Unknown]
